FAERS Safety Report 13884372 (Version 9)
Quarter: 2018Q3

REPORT INFORMATION
  Report Type: Report from Study
  Country: DE (occurrence: DE)
  Receive Date: 20170821
  Receipt Date: 20180927
  Transmission Date: 20181010
  Serious: Yes (Death, Hospitalization, Other)
  Sender: FDA-Public Use
  Company Number: DE-BRISTOL-MYERS SQUIBB COMPANY-BMS-2017-061860

PATIENT
  Age: 77 Year
  Sex: Male

DRUGS (14)
  1. GRANISETRON [Concomitant]
     Active Substance: GRANISETRON
     Indication: NEOPLASM
     Dosage: 2 MG, UNK
     Route: 065
     Dates: start: 20170222
  2. MCP [Concomitant]
     Active Substance: METOCLOPRAMIDE HYDROCHLORIDE
     Indication: NEOPLASM
     Dosage: 40 MG, PRN
     Route: 065
     Dates: start: 20170222
  3. L?DOPA+BENSERAZIDE [Concomitant]
     Indication: PRODUCT USED FOR UNKNOWN INDICATION
     Dosage: 1 DF, UNK
     Route: 065
  4. PANTOZOL [Concomitant]
     Active Substance: PANTOPRAZOLE SODIUM
     Indication: PROPHYLAXIS
     Dosage: 40 MG, UNK
     Route: 065
     Dates: start: 20170307, end: 20170619
  5. TRIMIPRAMIN                        /00051802/ [Concomitant]
     Active Substance: TRIMIPRAMINE MALEATE
     Indication: PRODUCT USED FOR UNKNOWN INDICATION
     Dosage: 50 MG, UNK
     Route: 065
  6. FOLSAN [Concomitant]
     Active Substance: FOLIC ACID
     Indication: PROPHYLAXIS
     Dosage: 5 MG, UNK
     Route: 065
     Dates: start: 20170530
  7. PANTOZOL [Concomitant]
     Active Substance: PANTOPRAZOLE SODIUM
     Indication: PRODUCT USED FOR UNKNOWN INDICATION
     Dosage: 20 MG, UNK
     Route: 065
     Dates: start: 20170620
  8. NUTRIFLEX LIPID SPECIAL [Concomitant]
     Indication: NEOPLASM
     Dosage: UNK
     Route: 051
     Dates: start: 20170228
  9. NIVOLUMAB [Suspect]
     Active Substance: NIVOLUMAB
     Indication: NON-SMALL CELL LUNG CANCER
     Dosage: 3 MG/KG, Q2WK
     Route: 042
     Dates: start: 20170627, end: 20170627
  10. NOVAMINSULFON [Concomitant]
     Active Substance: METAMIZOLE
     Indication: NEOPLASM
     Dosage: 1 DF, PRN
     Route: 065
     Dates: start: 20170222
  11. ALLOPURINOL. [Concomitant]
     Active Substance: ALLOPURINOL
     Indication: PROPHYLAXIS
     Dosage: 300 MG, UNK
     Route: 065
  12. PLANTAGO OVATA [Concomitant]
     Active Substance: HERBALS\PLANTAGO OVATA LEAF
     Indication: NEOPLASM
     Dosage: UNK UNK, PRN (1 TO 3 TABLE SPOON WITH ONE GLASS WATER)
     Route: 065
     Dates: start: 20170307
  13. LOPERAMID [Concomitant]
     Active Substance: LOPERAMIDE
     Indication: NEOPLASM
     Dosage: 4 MG, PRN
     Route: 065
  14. LAXOBERAL [Concomitant]
     Active Substance: SODIUM PICOSULFATE
     Indication: NEOPLASM
     Dosage: UNK, PRN(10 DROPS AS NEEDED)
     Route: 065
     Dates: start: 20170307

REACTIONS (5)
  - Pneumonia [Recovered/Resolved]
  - Pulmonary embolism [Recovered/Resolved]
  - Deep vein thrombosis [Recovered/Resolved]
  - Death [Fatal]
  - Encephalopathy [Unknown]

NARRATIVE: CASE EVENT DATE: 20170710
